FAERS Safety Report 5422642-7 (Version None)
Quarter: 2007Q3

REPORT INFORMATION
  Report Type: 
  Country: None (occurrence: None)
  Receive Date: 20070730
  Receipt Date: 20070430
  Transmission Date: 20080115
  Serious: Yes (Other)
  Sender: FDA-Public Use
  Company Number: 200710817BWH

PATIENT
  Age: 50 Year
  Sex: Female
  Weight: 81.6475 kg

DRUGS (1)
  1. AVELOX [Suspect]
     Indication: TOOTH INFECTION
     Dosage: 400 MG, QD, ORAL
     Route: 048
     Dates: start: 20060101

REACTIONS (1)
  - DYSPNOEA [None]
